FAERS Safety Report 7520124-X (Version None)
Quarter: 2011Q2

REPORT INFORMATION
  Report Type: 
  Country: None (occurrence: None)
  Receive Date: 20110602
  Receipt Date: 20110523
  Transmission Date: 20111010
  Serious: Yes (Death)
  Sender: FDA-Public Use
  Company Number: US-CELGENEUS-163-21880-11053007

PATIENT
  Age: 75 Year
  Sex: Female

DRUGS (11)
  1. REVLIMID [Suspect]
     Indication: MULTIPLE MYELOMA
     Dosage: 5 MILLIGRAM
     Route: 048
     Dates: start: 20080101, end: 20091201
  2. RED BLOOD CELLS [Concomitant]
     Dosage: 3 UNITS
     Route: 051
     Dates: start: 20100729, end: 20100729
  3. REVLIMID [Suspect]
     Route: 048
     Dates: start: 20100201, end: 20101101
  4. GABAPENTIN [Concomitant]
     Route: 065
  5. OMEPRAZOLE [Concomitant]
     Route: 065
  6. RED BLOOD CELLS [Concomitant]
     Dosage: 2 UNITS
     Route: 051
     Dates: start: 20100310, end: 20101001
  7. PERCOCET [Concomitant]
     Route: 065
  8. LEVOTHROID [Concomitant]
     Route: 065
  9. TRAZODONE HCL [Concomitant]
     Route: 065
  10. MEGACE [Concomitant]
     Route: 065
  11. XALATAN [Concomitant]
     Route: 065

REACTIONS (1)
  - DEATH [None]
